FAERS Safety Report 9722043 (Version 1)
Quarter: 2013Q4

REPORT INFORMATION
  Report Type: Spontaneous
  Country: US (occurrence: US)
  Receive Date: 20131202
  Receipt Date: 20131202
  Transmission Date: 20140711
  Serious: No
  Sender: FDA-Public Use
  Company Number: US-BIOGENIDEC-2013BI084397

PATIENT
  Age: 61 Year
  Sex: Female

DRUGS (20)
  1. TECFIDERA [Suspect]
     Indication: PRODUCT USED FOR UNKNOWN INDICATION
     Route: 048
     Dates: end: 20130916
  2. DEXEDRINE CR [Concomitant]
  3. WELLBUTRIN SR [Concomitant]
  4. METFORMIN [Concomitant]
  5. POTASSIUM CHLORIDE CR [Concomitant]
  6. COD LIVER OIL [Concomitant]
  7. VIT E [Concomitant]
  8. CALCIUM [Concomitant]
  9. FERROUS SULFATE [Concomitant]
  10. EFFEXOR XR [Concomitant]
  11. KADIAN CR [Concomitant]
  12. DILAUDID [Concomitant]
  13. NORCO 10-325 MG [Concomitant]
  14. CONCERTA [Concomitant]
  15. BLACK COHOSH [Concomitant]
  16. MAGNESIUM [Concomitant]
  17. MOTRIN [Concomitant]
  18. LEVOXYL [Concomitant]
  19. ZANTAC [Concomitant]
  20. MAXZIDE [Concomitant]

REACTIONS (4)
  - Irritability [Recovered/Resolved]
  - Rash [Not Recovered/Not Resolved]
  - Pruritus [Not Recovered/Not Resolved]
  - Nausea [Recovered/Resolved]
